FAERS Safety Report 17897310 (Version 1)
Quarter: 2020Q2

REPORT INFORMATION
  Report Type: Spontaneous
  Country: CO (occurrence: CO)
  Receive Date: 20200615
  Receipt Date: 20200615
  Transmission Date: 20200714
  Serious: Yes (Life-Threatening, Other)
  Sender: FDA-Public Use
  Company Number: NVSC2020CO165488

PATIENT
  Age: 15 Year
  Sex: Female

DRUGS (3)
  1. TRILEPTAL [Suspect]
     Active Substance: OXCARBAZEPINE
     Dosage: 10 ML, QD (5 ML IN THE MORNING AND 5 ML AT THE AFTERNOON)
     Route: 048
  2. TRILEPTAL [Suspect]
     Active Substance: OXCARBAZEPINE
     Indication: EPILEPSY
     Dosage: 20 ML, QD (10 ML IN THE MORNING AND 10 ML AT THE AFTERNOON)
     Route: 048
  3. TRILEPTAL [Suspect]
     Active Substance: OXCARBAZEPINE
     Dosage: 10 ML, QD (MORNING DOSE)
     Route: 048

REACTIONS (5)
  - Incorrect dose administered [Unknown]
  - Epilepsy [Unknown]
  - Feeling abnormal [Unknown]
  - Drug dependence [Unknown]
  - Product availability issue [Unknown]
